FAERS Safety Report 14349631 (Version 1)
Quarter: 2018Q1

REPORT INFORMATION
  Report Type: Spontaneous
  Country: US (occurrence: US)
  Receive Date: 20180103
  Receipt Date: 20180103
  Transmission Date: 20180509
  Serious: Yes (Other)
  Sender: FDA-Public Use
  Company Number: None

PATIENT
  Age: 53 Year
  Sex: Female
  Weight: 94.5 kg

DRUGS (19)
  1. CARAFATE [Concomitant]
     Active Substance: SUCRALFATE
  2. VITAMIN D [Concomitant]
     Active Substance: CHOLECALCIFEROL
  3. CLEAR EYES MAXIMUM ITCHY EYE RELIEF [Suspect]
     Active Substance: GLYCERIN\NAPHAZOLINE HYDROCHLORIDE\ZINC SULFATE
     Indication: EYE ALLERGY
     Dosage: ?          QUANTITY:1 DROP(S);?
     Route: 047
     Dates: start: 20171230, end: 20171230
  4. PERCOCET [Concomitant]
     Active Substance: ACETAMINOPHEN\OXYCODONE HYDROCHLORIDE
  5. PROTONIX [Concomitant]
     Active Substance: PANTOPRAZOLE SODIUM
  6. FIOROCET [Concomitant]
  7. VITAMIN B12 [Concomitant]
     Active Substance: CYANOCOBALAMIN
  8. IRON [Concomitant]
     Active Substance: IRON
  9. XANAX [Concomitant]
     Active Substance: ALPRAZOLAM
  10. SOMA [Concomitant]
     Active Substance: CARISOPRODOL
  11. AMBIEN [Concomitant]
     Active Substance: ZOLPIDEM TARTRATE
  12. VITAMIN C [Concomitant]
     Active Substance: ASCORBIC ACID
  13. FOLIC ACID. [Concomitant]
     Active Substance: FOLIC ACID
  14. REQUIP [Concomitant]
     Active Substance: ROPINIROLE HYDROCHLORIDE
  15. GABEPENTIN [Concomitant]
  16. ATARAX [Concomitant]
     Active Substance: HYDROXYZINE HYDROCHLORIDE
  17. TOPICAL PRESCRIPTION STRENGTH PAIN CREAM [Concomitant]
  18. CLONODINE [Concomitant]
  19. CLEAR EYES MAXIMUM ITCHY EYE RELIEF [Concomitant]
     Active Substance: GLYCERIN\NAPHAZOLINE HYDROCHLORIDE\ZINC SULFATE

REACTIONS (7)
  - Blood glucose increased [None]
  - Headache [None]
  - Hyperhidrosis [None]
  - Thirst [None]
  - Pollakiuria [None]
  - Dizziness [None]
  - Heart rate increased [None]

NARRATIVE: CASE EVENT DATE: 20171230
